FAERS Safety Report 15771076 (Version 1)
Quarter: 2018Q4

REPORT INFORMATION
  Report Type: Spontaneous
  Country: US (occurrence: US)
  Receive Date: 20181228
  Receipt Date: 20181228
  Transmission Date: 20190205
  Serious: Yes (Hospitalization)
  Sender: FDA-Public Use
  Company Number: None

PATIENT
  Sex: Female

DRUGS (22)
  1. LEVOTHYROXIN [Concomitant]
     Active Substance: LEVOTHYROXINE
  2. DOXYCYC MONO [Concomitant]
     Active Substance: DOXYCYCLINE
  3. ALBUTEROL. [Concomitant]
     Active Substance: ALBUTEROL
  4. ADCIRCA/ AMOX/K CLAV [Concomitant]
  5. MYCOPHENOLAT [Concomitant]
     Active Substance: MYCOPHENOLATE MOFETIL
  6. MYRBETRIQ [Concomitant]
     Active Substance: MIRABEGRON
  7. HYDROCHLOROT [Concomitant]
     Active Substance: HYDROCHLOROTHIAZIDE
  8. FUROSEMIDE. [Concomitant]
     Active Substance: FUROSEMIDE
  9. METFORMIN [Concomitant]
     Active Substance: METFORMIN HYDROCHLORIDE
  10. IBU [Concomitant]
     Active Substance: IBUPROFEN
  11. TADALAFIL. [Suspect]
     Active Substance: TADALAFIL
     Indication: PULMONARY ARTERIAL HYPERTENSION
     Route: 048
     Dates: start: 20181101
  12. METHYLPRED [Concomitant]
     Active Substance: METHYLPREDNISOLONE
  13. CELECOXIB. [Concomitant]
     Active Substance: CELECOXIB
  14. ROPINIROLE. [Concomitant]
     Active Substance: ROPINIROLE
  15. POTASSIUM CHLORIDE. [Concomitant]
     Active Substance: POTASSIUM CHLORIDE
  16. LISINOPRIL. [Concomitant]
     Active Substance: LISINOPRIL
  17. DULOXETINE. [Concomitant]
     Active Substance: DULOXETINE
  18. NIFEDIPINE. [Concomitant]
     Active Substance: NIFEDIPINE
  19. SMZ/TMP [Concomitant]
     Active Substance: SULFAMETHOXAZOLE\TRIMETHOPRIM
  20. LETAIRIS/CEPHALEXIN [Concomitant]
  21. SIMVASTATIN/CEFDINIR [Concomitant]
  22. VITAMIN D [Concomitant]
     Active Substance: CHOLECALCIFEROL

REACTIONS (2)
  - Fluid retention [None]
  - Therapy cessation [None]
